FAERS Safety Report 6110185-7 (Version None)
Quarter: 2009Q1

REPORT INFORMATION
  Report Type: 
  Country: None (occurrence: None)
  Receive Date: 20090310
  Receipt Date: 20090302
  Transmission Date: 20090719
  Serious: Yes (Other)
  Sender: FDA-Public Use
  Company Number: US-JNJFOC-20090300918

PATIENT
  Sex: Male
  Weight: 117.48 kg

DRUGS (4)
  1. INFLIXIMAB [Suspect]
     Dosage: 42 INFUSIONS
     Route: 042
  2. INFLIXIMAB [Suspect]
     Indication: CROHN'S DISEASE
     Dosage: 2 INFUSIONS ON UNSPECIFIED DATES PRIOR TO BASELINE
     Route: 042
  3. AZATHIOPRINE [Concomitant]
     Indication: CROHN'S DISEASE
  4. MESALAMINE [Concomitant]
     Indication: CROHN'S DISEASE

REACTIONS (2)
  - PARATHYROID TUMOUR BENIGN [None]
  - THYROID CANCER [None]
